FAERS Safety Report 12224888 (Version 1)
Quarter: 2016Q1

REPORT INFORMATION
  Report Type: Spontaneous
  Country: US (occurrence: US)
  Receive Date: 20160331
  Receipt Date: 20160331
  Transmission Date: 20160526
  Serious: No
  Sender: FDA-Public Use
  Company Number: US-PFIZER INC-2016143751

PATIENT
  Age: 57 Year
  Sex: Female
  Weight: 86 kg

DRUGS (4)
  1. SKELAXIN [Suspect]
     Active Substance: METAXALONE
     Indication: MUSCLE RELAXANT THERAPY
  2. SKELAXIN [Suspect]
     Active Substance: METAXALONE
     Indication: PAIN IN EXTREMITY
  3. SKELAXIN [Suspect]
     Active Substance: METAXALONE
     Indication: PAIN
  4. IBUPROFEN. [Concomitant]
     Active Substance: IBUPROFEN
     Dosage: 800 MG, AS NEEDED

REACTIONS (3)
  - Malaise [Recovered/Resolved]
  - Nausea [Recovered/Resolved]
  - Hypersensitivity [Recovered/Resolved]
